FAERS Safety Report 4886920-2 (Version None)
Quarter: 2006Q1

REPORT INFORMATION
  Report Type: 
  Country: None (occurrence: None)
  Receive Date: 20060119
  Receipt Date: 20060110
  Transmission Date: 20060701
  Serious: Yes (Hospitalization)
  Sender: FDA-Public Use
  Company Number: 2005US001711

PATIENT
  Age: 55 Year
  Sex: Male

DRUGS (19)
  1. PROGRAF [Suspect]
     Indication: PROPHYLAXIS AGAINST TRANSPLANT REJECTION
     Dosage: 5 MG, BID, ORAL
     Route: 048
     Dates: start: 20050223
  2. MYCOPHENOLATE MOFETIL (MYCOPHENOLATE MOFETIL) [Suspect]
     Indication: PROPHYLAXIS AGAINST TRANSPLANT REJECTION
     Dosage: 1G, BID, ORAL
     Route: 048
     Dates: start: 20050223
  3. CORTICOSTEROIDS (CORTICOSTEROIDS) [Suspect]
     Indication: PROPHYLAXIS AGAINST TRANSPLANT REJECTION
  4. TEMAZEPAM [Concomitant]
  5. DIOVAN [Concomitant]
  6. NORVASC   /DEN/ (AMLODIPINE BESILATE) [Concomitant]
  7. CLONDINE (CLONDINE) [Concomitant]
  8. LIPITOR [Concomitant]
  9. LASIX [Concomitant]
  10. COZAAR [Concomitant]
  11. SYNTHROID [Concomitant]
  12. EFFEXOR [Concomitant]
  13. ZYRTEC [Concomitant]
  14. FOLIC ACID/MULTIVITAMIN (FOLIC ACID) [Concomitant]
  15. PRANDIN ^NOVO NORDISK^ (REPAGLINIDE) [Concomitant]
  16. POTASSIUM (POTASSIUM) [Concomitant]
  17. COLACE (DOCUSATE SODIUM) [Concomitant]
  18. VALCYTE [Concomitant]
  19. METOPROLOL [Concomitant]

REACTIONS (2)
  - CARDIOMEGALY [None]
  - CHEST PAIN [None]
